FAERS Safety Report 8699841 (Version 3)
Quarter: 2014Q2

REPORT INFORMATION
  Report Type: Spontaneous
  Country: US (occurrence: US)
  Receive Date: 20120802
  Receipt Date: 20140618
  Transmission Date: 20141212
  Serious: Yes (Hospitalization, Other)
  Sender: FDA-Public Use
  Company Number: US-ASTRAZENECA-2012SE51215

PATIENT
  Age: 28 Year
  Sex: Male
  Weight: 81.6 kg

DRUGS (9)
  1. SEROQUEL [Suspect]
     Indication: SCHIZOAFFECTIVE DISORDER
     Route: 048
     Dates: start: 2005
  2. SEROQUEL [Suspect]
     Indication: INSOMNIA
     Route: 048
     Dates: start: 2005
  3. SEROQUEL [Suspect]
     Indication: SCHIZOAFFECTIVE DISORDER
     Dosage: GENERIC
     Route: 048
     Dates: start: 2012
  4. SEROQUEL [Suspect]
     Indication: INSOMNIA
     Dosage: GENERIC
     Route: 048
     Dates: start: 2012
  5. SEROQUEL [Suspect]
     Indication: SCHIZOAFFECTIVE DISORDER
     Route: 048
  6. SEROQUEL [Suspect]
     Indication: INSOMNIA
     Route: 048
  7. KLONOPIN [Suspect]
     Indication: ANXIETY
     Route: 065
  8. KLONOPIN [Suspect]
     Indication: SLEEP DISORDER
     Route: 065
  9. LUNESTA [Suspect]
     Indication: SLEEP DISORDER
     Route: 065

REACTIONS (12)
  - Aggression [Unknown]
  - Muscular weakness [Unknown]
  - Insomnia [Unknown]
  - Discomfort [Unknown]
  - Adverse drug reaction [Unknown]
  - Emotional disorder [Unknown]
  - Asthenia [Unknown]
  - Drug ineffective for unapproved indication [Unknown]
  - Drug effect incomplete [Unknown]
  - Off label use [Unknown]
  - Drug dose omission [Unknown]
  - Intentional product misuse [Unknown]
